FAERS Safety Report 14787183 (Version 2)
Quarter: 2018Q2

REPORT INFORMATION
  Report Type: Spontaneous
  Country: JP (occurrence: JP)
  Receive Date: 20180421
  Receipt Date: 20180523
  Transmission Date: 20180711
  Serious: Yes (Life-Threatening, Hospitalization)
  Sender: FDA-Public Use
  Company Number: JP-ROCHE-2111976

PATIENT
  Age: 76 Year
  Sex: Male
  Weight: 51 kg

DRUGS (2)
  1. METHOTREXATE. [Suspect]
     Active Substance: METHOTREXATE
     Indication: PRODUCT USED FOR UNKNOWN INDICATION
     Dosage: DOSAGE IS UNCERTAIN.
     Route: 065
  2. ACTEMRA [Suspect]
     Active Substance: TOCILIZUMAB
     Indication: RHEUMATOID ARTHRITIS
     Route: 041

REACTIONS (2)
  - Pleurisy [Not Recovered/Not Resolved]
  - Infectious pleural effusion [Recovered/Resolved with Sequelae]

NARRATIVE: CASE EVENT DATE: 20180327
